FAERS Safety Report 5055811-9 (Version None)
Quarter: 2006Q3

REPORT INFORMATION
  Report Type: 
  Country: None (occurrence: None)
  Receive Date: 20060718
  Receipt Date: 20060718
  Transmission Date: 20061208
  Serious: Yes (Hospitalization)
  Sender: FDA-Public Use
  Company Number: None

PATIENT
  Age: 37 Year
  Sex: Female
  Weight: 74.3899 kg

DRUGS (2)
  1. CIPROFLOXACIN [Suspect]
     Indication: STAPHYLOCOCCAL INFECTION
     Dosage: 1 TABLET PO
     Route: 048
     Dates: start: 20051027, end: 20051110
  2. CIPROFLOXACIN [Suspect]
     Indication: STAPHYLOCOCCAL INFECTION
     Dosage: 1 TABLET PO
     Route: 048
     Dates: start: 20051220, end: 20051230

REACTIONS (4)
  - ANXIETY [None]
  - CAFFEINE CONSUMPTION [None]
  - CHEST DISCOMFORT [None]
  - PALPITATIONS [None]
